FAERS Safety Report 9414577 (Version 2)
Quarter: 2013Q4

REPORT INFORMATION
  Report Type: Report from Study
  Country: US (occurrence: US)
  Receive Date: 20130723
  Receipt Date: 20131016
  Transmission Date: 20140711
  Serious: Yes (Hospitalization)
  Sender: FDA-Public Use
  Company Number: US-ROCHE-1250928

PATIENT
  Age: 41 Year
  Sex: Male
  Weight: 91.5 kg

DRUGS (10)
  1. PEG-INTERFERON ALFA 2A [Suspect]
     Indication: HEPATITIS C
     Route: 058
     Dates: start: 20120809
  2. RIBAVIRIN [Suspect]
     Indication: HEPATITIS C
     Route: 048
     Dates: start: 20120809
  3. VX-950 [Suspect]
     Indication: HEPATITIS C
     Route: 048
     Dates: start: 20121107
  4. NEXIUM [Concomitant]
     Route: 065
     Dates: start: 20120410
  5. LOPID [Concomitant]
     Route: 065
     Dates: start: 20120410
  6. LISINOPRIL [Concomitant]
     Route: 065
     Dates: start: 20120410
  7. AMLODIPINE BESYLATE/ATORVASTATIN CALCIUM [Concomitant]
     Route: 065
     Dates: start: 20120410
  8. WELLBUTRIN [Concomitant]
     Route: 065
     Dates: start: 20120410
  9. ATRIPLA [Concomitant]
     Route: 065
     Dates: start: 20080303
  10. HYDROCHLOROTHIAZIDE [Concomitant]
     Route: 065
     Dates: start: 20120410

REACTIONS (2)
  - Pneumonia [Recovered/Resolved with Sequelae]
  - Pneumonia [Recovering/Resolving]
